FAERS Safety Report 4873852-9 (Version None)
Quarter: 2006Q1

REPORT INFORMATION
  Report Type: 
  Country: None (occurrence: None)
  Receive Date: 20060103
  Receipt Date: 20060103
  Transmission Date: 20060701
  Serious: No
  Sender: FDA-Public Use
  Company Number: None

PATIENT
  Sex: Male
  Weight: 81.6475 kg

DRUGS (1)
  1. TRAZODONE HCL [Suspect]
     Dosage: 50 MG HS PO
     Route: 048

REACTIONS (2)
  - DIZZINESS [None]
  - FALL [None]
